FAERS Safety Report 5750539-1 (Version None)
Quarter: 2008Q2

REPORT INFORMATION
  Report Type: 
  Country: None (occurrence: None)
  Receive Date: 20080528
  Receipt Date: 20080521
  Transmission Date: 20081010
  Serious: No
  Sender: FDA-Public Use
  Company Number: US-BAYER-200823593NA

PATIENT
  Age: 36 Year
  Sex: Female
  Weight: 86 kg

DRUGS (4)
  1. MIRENA [Suspect]
     Indication: CONTRACEPTION
     Route: 015
     Dates: start: 20030101, end: 20080101
  2. MIRENA [Suspect]
     Route: 015
     Dates: start: 20080509
  3. PROZAC [Concomitant]
     Indication: DRUG USE FOR UNKNOWN INDICATION
  4. VITAMINS [Concomitant]

REACTIONS (1)
  - HYPOAESTHESIA [None]
